FAERS Safety Report 6874587-3 (Version None)
Quarter: 2010Q3

REPORT INFORMATION
  Report Type: 
  Country: None (occurrence: None)
  Receive Date: 20100722
  Receipt Date: 20100712
  Transmission Date: 20110219
  Serious: Yes (Other)
  Sender: FDA-Public Use
  Company Number: 20109031

PATIENT
  Age: 51 Year
  Sex: Male
  Weight: 49 kg

DRUGS (3)
  1. BACLOFEN [Suspect]
     Indication: MUSCLE SPASTICITY
     Dosage: SCREENING DOSE MCG, DAILY, INTRATHECAL
     Route: 037
  2. LIORESAL [Concomitant]
  3. MYONAL [Concomitant]

REACTIONS (2)
  - ASTHENIA [None]
  - URINARY RETENTION [None]
